FAERS Safety Report 4368792-8 (Version None)
Quarter: 2004Q2

REPORT INFORMATION
  Report Type: 
  Country: None (occurrence: None)
  Receive Date: 20040527
  Receipt Date: 20040512
  Transmission Date: 20050107
  Serious: Yes (Other)
  Sender: FDA-Public Use
  Company Number: US040361640

PATIENT
  Age: 14 Year
  Sex: Male

DRUGS (1)
  1. STRATTERA [Suspect]
     Indication: ATTENTION DEFICIT/HYPERACTIVITY DISORDER
     Dates: start: 20040201

REACTIONS (9)
  - ABNORMAL BEHAVIOUR [None]
  - AGGRESSION [None]
  - AGITATION [None]
  - ANXIETY [None]
  - BURNS FIRST DEGREE [None]
  - BURNS SECOND DEGREE [None]
  - PSYCHOMOTOR HYPERACTIVITY [None]
  - SELF INJURIOUS BEHAVIOUR [None]
  - SELF-INJURIOUS IDEATION [None]
